FAERS Safety Report 8277347-4 (Version None)
Quarter: 2012Q2

REPORT INFORMATION
  Report Type: 
  Country: None (occurrence: None)
  Receive Date: 20120412
  Receipt Date: 20120410
  Transmission Date: 20120825
  Serious: Yes (Other)
  Sender: FDA-Public Use
  Company Number: JP-PFIZER INC-2012068981

PATIENT
  Age: 81 Year
  Sex: Male

DRUGS (3)
  1. LYRICA [Suspect]
     Indication: PAIN
     Dosage: 225 MG DAILY
     Route: 048
     Dates: start: 20120101, end: 20120301
  2. LYRICA [Suspect]
     Dosage: 300 MG DAILY
     Route: 048
     Dates: start: 20120301, end: 20120312
  3. LYRICA [Suspect]
     Indication: HYPOAESTHESIA
     Dosage: 150 MG DAILY
     Route: 048
     Dates: start: 20111001, end: 20120101

REACTIONS (6)
  - DISORIENTATION [None]
  - OVERDOSE [None]
  - MUSCULAR WEAKNESS [None]
  - DYSARTHRIA [None]
  - BLOOD CREATININE INCREASED [None]
  - SENSORY DISTURBANCE [None]
